FAERS Safety Report 17683200 (Version 5)
Quarter: 2020Q4

REPORT INFORMATION
  Report Type: Report from Study
  Country: US (occurrence: US)
  Receive Date: 20200420
  Receipt Date: 20201204
  Transmission Date: 20210113
  Serious: Yes (Hospitalization, Other)
  Sender: FDA-Public Use
  Company Number: US-ROCHE-2425505

PATIENT
  Age: 55 Year
  Sex: Female
  Weight: 93.7 kg

DRUGS (6)
  1. PERCOCET [Concomitant]
     Active Substance: ACETAMINOPHEN\OXYCODONE HYDROCHLORIDE
  2. LIPOSOMAL DOXORUBICIN [Suspect]
     Active Substance: DOXORUBICIN HYDROCHLORIDE
     Indication: MALIGNANT PERITONEAL NEOPLASM
     Dosage: LAST ADMINISTERED DATE: 27-JUN-2019 CYCLE: 28 DAYS PLD 40 MG/M2 IV OVER 1 HOUR ON DAY 1
     Route: 042
     Dates: start: 20190502
  3. BEVACIZUMAB. [Suspect]
     Active Substance: BEVACIZUMAB
     Indication: MALIGNANT PERITONEAL NEOPLASM
     Dosage: LAST ADMINISTERED DATE: 27-JUN-2019 CYCLE: 28 DAYS BEVACIZUMAB (RHUMAB VEGF) 10 MG/KG IV OVER 90 MIN
     Route: 041
     Dates: start: 20190502
  4. ATEZOLIZUMAB. [Suspect]
     Active Substance: ATEZOLIZUMAB
     Indication: MALIGNANT PERITONEAL NEOPLASM
     Dosage: LAST ADMINISTERED DATE: 27/JUN/2019, CYCLE: 28 DAYS: ATEZOLIZUMAB (MPDL3280A) 800 MG IV OVER 1 HOUR
     Route: 041
     Dates: start: 20190502
  5. CARBOPLATIN. [Concomitant]
     Active Substance: CARBOPLATIN
  6. PACLITAXEL. [Concomitant]
     Active Substance: PACLITAXEL

REACTIONS (4)
  - Palmar-plantar erythrodysaesthesia syndrome [Recovering/Resolving]
  - Stomatitis [Recovering/Resolving]
  - Rash maculo-papular [Recovering/Resolving]
  - Enterocolitis [Recovered/Resolved]

NARRATIVE: CASE EVENT DATE: 20190701
